FAERS Safety Report 8107561 (Version 2)
Quarter: 2012Q4

REPORT INFORMATION
  Report Type: 
  Country: US (occurrence: US)
  Receive Date: 20110825
  Receipt Date: 20121213
  Transmission Date: 20130627
  Serious: Yes (Other)
  Sender: FDA-Public Use
  Company Number: US-ASTRAZENECA-2010SE12448

PATIENT
  Age: 70 Year
  Sex: Male

DRUGS (2)
  1. NEXIUM [Suspect]
     Route: 048
  2. CRESTOR [Suspect]
     Route: 048

REACTIONS (7)
  - Myocardial infarction [Unknown]
  - Thrombosis [Unknown]
  - Cerebrovascular accident [Unknown]
  - Dyspepsia [Unknown]
  - Pain [Unknown]
  - Abdominal pain upper [Unknown]
  - Drug dose omission [Unknown]
